FAERS Safety Report 8117657-4 (Version None)
Quarter: 2012Q1

REPORT INFORMATION
  Report Type: 
  Country: None (occurrence: None)
  Receive Date: 20120203
  Receipt Date: 20120203
  Transmission Date: 20120608
  Serious: Yes (Other)
  Sender: FDA-Public Use
  Company Number: None

PATIENT
  Sex: Male

DRUGS (2)
  1. DEPAKOTE [Suspect]
     Indication: PSYCHOTIC DISORDER
     Dosage: 2000MG HS PO ; 500 MG QAM PO
     Route: 048
     Dates: start: 20110913
  2. DEPAKOTE [Suspect]
     Indication: PSYCHOTIC DISORDER
     Dosage: 2000MG HS PO ; 500 MG QAM PO
     Route: 048
     Dates: start: 20110913

REACTIONS (1)
  - NEUTROPHIL COUNT ABNORMAL [None]
